FAERS Safety Report 5743466-7 (Version None)
Quarter: 2008Q2

REPORT INFORMATION
  Report Type: 
  Country: None (occurrence: None)
  Receive Date: 20080520
  Receipt Date: 20080508
  Transmission Date: 20081010
  Serious: Yes (Hospitalization)
  Sender: FDA-Public Use
  Company Number: BE-JNJFOC-20080405436

PATIENT
  Age: 79 Year
  Sex: Female
  Weight: 58 kg

DRUGS (8)
  1. REMICADE [Suspect]
     Indication: RHEUMATOID ARTHRITIS
     Dosage: TOTAL # INFUSIONS: 8
     Route: 042
  2. NICOTIBINE [Concomitant]
  3. OMEPRAZOLE [Concomitant]
  4. LEDERPAX [Concomitant]
  5. MELOXICAM [Concomitant]
  6. ACETAMINOPHEN [Concomitant]
  7. RIFADIN [Concomitant]
  8. TEBRAZID [Concomitant]

REACTIONS (1)
  - DISSEMINATED TUBERCULOSIS [None]
